FAERS Safety Report 18693858 (Version 1)
Quarter: 2021Q1

REPORT INFORMATION
  Report Type: Report from Study
  Country: DE (occurrence: DE)
  Receive Date: 20210104
  Receipt Date: 20210104
  Transmission Date: 20210419
  Serious: Yes (Life-Threatening, Other)
  Sender: FDA-Public Use
  Company Number: DE-PFIZER INC-2020518442

PATIENT
  Age: 59 Year
  Sex: Female

DRUGS (16)
  1. METHOTREXATE SODIUM. [Suspect]
     Active Substance: METHOTREXATE SODIUM
     Indication: CENTRAL NERVOUS SYSTEM LYMPHOMA
     Dosage: 5G/M2 ON DAY 1 IN CYCLE A1
     Route: 042
  2. METHOTREXATE SODIUM. [Suspect]
     Active Substance: METHOTREXATE SODIUM
     Dosage: 3.5 G/M2 ON DAY 1 IN CYCLE B1, A2 AND B2
     Route: 042
  3. METHOTREXATE SODIUM. [Suspect]
     Active Substance: METHOTREXATE SODIUM
     Dosage: 3 MG INTRAVENTRICULAR ON DAY 1?4 IN CYCLE A AND B, ON DAY 3?6 IN CYCLE C
  4. VINDESINE [Suspect]
     Active Substance: VINDESINE
     Indication: CENTRAL NERVOUS SYSTEM LYMPHOMA
     Dosage: 5 MG ON DAY 1 IN CYCLE C
     Route: 042
  5. MESNA. [Concomitant]
     Active Substance: MESNA
     Indication: PROPHYLAXIS
     Dosage: UNK
  6. CYTARABINE. [Suspect]
     Active Substance: CYTARABINE
     Dosage: 30 MG INTRAVENTRICULAR ON DAY 7 IN CYCLE C
  7. CYTARABINE. [Suspect]
     Active Substance: CYTARABINE
     Dosage: 3 G/M2 OVER 3 HR VIA INFUSION ON DAY 1 AND 2 IN CYCLE C
  8. DEXAMETHASONE. [Suspect]
     Active Substance: DEXAMETHASONE
     Dosage: 20 MG/M2 ON DAY 1?5 IN CYCLE C
     Route: 048
  9. IFOSFAMIDE. [Suspect]
     Active Substance: IFOSFAMIDE
     Indication: CENTRAL NERVOUS SYSTEM LYMPHOMA
     Dosage: 800 MG/M2, OVER 1 HR VIA INFUSION, ON DAY 2?5 IN CYCLE A1
     Route: 042
  10. TROPISETRON [Concomitant]
     Active Substance: TROPISETRON
     Indication: PROPHYLAXIS OF NAUSEA AND VOMITING
     Dosage: UNK
  11. ONDANSETRON [Concomitant]
     Active Substance: ONDANSETRON
     Indication: PROPHYLAXIS OF NAUSEA AND VOMITING
  12. CYTARABINE. [Suspect]
     Active Substance: CYTARABINE
     Dosage: 30 MG INTRAVENTRICULAR ON DAY 5 IN CYCLE B
  13. PREDNISOLONE. [Suspect]
     Active Substance: PREDNISOLONE
     Indication: CENTRAL NERVOUS SYSTEM LYMPHOMA
     Dosage: 2.5 MG INTRAVENTRICULAR ON DAY 1?4 IN CYCLE A AND B, ON DAY 3?6 IN CYCLE C
  14. DEXAMETHASONE. [Suspect]
     Active Substance: DEXAMETHASONE
     Indication: CENTRAL NERVOUS SYSTEM LYMPHOMA
     Dosage: 10 MG/M2 ON DAY 1?5 IN CYCLE A AND B
     Route: 048
  15. CYTARABINE. [Suspect]
     Active Substance: CYTARABINE
     Indication: CENTRAL NERVOUS SYSTEM LYMPHOMA
     Dosage: 30 MG, INTRAVENTRICULAR ON DAY 5 IN CYCLE A
     Route: 042
  16. VINCRISTINE SULFATE. [Suspect]
     Active Substance: VINCRISTINE SULFATE
     Indication: CENTRAL NERVOUS SYSTEM LYMPHOMA
     Dosage: 2 MG ON DAY 1 IN CYCLE A1
     Route: 042

REACTIONS (3)
  - Duodenal ulcer perforation [Unknown]
  - Thrombocytopenia [Unknown]
  - Leukopenia [Unknown]
